FAERS Safety Report 20188721 (Version 1)
Quarter: 2021Q4

REPORT INFORMATION
  Report Type: Spontaneous
  Country: US (occurrence: US)
  Receive Date: 20211215
  Receipt Date: 20211215
  Transmission Date: 20220303
  Serious: No
  Sender: FDA-Public Use
  Company Number: US-PFIZER INC-202101409457

PATIENT
  Age: 67 Year
  Sex: Female

DRUGS (3)
  1. XELJANZ XR [Suspect]
     Active Substance: TOFACITINIB CITRATE
     Indication: Rheumatoid arthritis
     Dosage: 11 MG, 1X/DAY
     Route: 048
     Dates: start: 202109
  2. PREDNISONE [Concomitant]
     Active Substance: PREDNISONE
     Dosage: 5 MG, 1X/DAY (5MG ONCE DAILY)
  3. METHADONE [Concomitant]
     Active Substance: METHADONE HYDROCHLORIDE
     Dosage: UNK UNK, DAILY

REACTIONS (9)
  - Headache [Unknown]
  - Product dose omission issue [Unknown]
  - Memory impairment [Unknown]
  - Drug ineffective [Unknown]
  - Pain in extremity [Unknown]
  - Depressed mood [Unknown]
  - Neck pain [Unknown]
  - Discouragement [Unknown]
  - Loss of personal independence in daily activities [Unknown]
